FAERS Safety Report 9757951 (Version 3)
Quarter: 2013Q4

REPORT INFORMATION
  Report Type: Spontaneous
  Country: US (occurrence: US)
  Receive Date: 20131216
  Receipt Date: 20131227
  Transmission Date: 20140711
  Serious: Yes (Other)
  Sender: FDA-Public Use
  Company Number: US-BEH-2011029124

PATIENT
  Age: 68 Year
  Sex: Female
  Weight: 73 kg

DRUGS (22)
  1. HIZENTRA [Suspect]
     Indication: HYPOGAMMAGLOBULINAEMIA
     Dosage: 8 G (40 ML) VIA 3 SITES OVER 72 MINUTES
     Route: 058
     Dates: start: 20101004
  2. HIZENTRA [Suspect]
  3. HIZENTRA [Suspect]
  4. HIZENTRA [Suspect]
  5. HIZENTRA [Suspect]
  6. HIZENTRA [Suspect]
     Dosage: 3 SITES OVER 1-2 HOURS
     Route: 058
     Dates: start: 20131127
  7. ADVAIR [Concomitant]
  8. RESTORIL [Concomitant]
  9. SPIRIVA [Concomitant]
  10. WELLBUTRIN XL [Concomitant]
  11. FLONASE [Concomitant]
  12. PREDNISONE [Concomitant]
  13. XOPENEX [Concomitant]
  14. SYNTHROID [Concomitant]
  15. VITAMIN D [Concomitant]
  16. FLAXSEED [Concomitant]
  17. VITAMIN C [Concomitant]
  18. OMEGA 3 [Concomitant]
  19. DIPHENHYDRAMINE [Concomitant]
  20. LIDOCAINE/PRILOCAINE [Concomitant]
  21. EPI-PEN [Concomitant]
  22. CRESTOR [Concomitant]

REACTIONS (6)
  - Lower respiratory tract infection [Not Recovered/Not Resolved]
  - Respiratory tract infection [Recovered/Resolved]
  - Cough [Unknown]
  - Infusion site erythema [Unknown]
  - Infusion site swelling [Recovered/Resolved]
  - Infusion site erythema [Unknown]
